FAERS Safety Report 20858834 (Version 3)
Quarter: 2022Q3

REPORT INFORMATION
  Report Type: Report from Study
  Country: NL (occurrence: NL)
  Receive Date: 20220522
  Receipt Date: 20220715
  Transmission Date: 20221027
  Serious: Yes (Other)
  Sender: FDA-Public Use
  Company Number: NL-ABBVIE-22K-114-4402668-00

PATIENT
  Sex: Male

DRUGS (2)
  1. CARBIDOPA\LEVODOPA [Suspect]
     Active Substance: CARBIDOPA\LEVODOPA
     Indication: Parkinson^s disease
     Route: 050
     Dates: start: 20180205
  2. CARBIDOPA\LEVODOPA [Suspect]
     Active Substance: CARBIDOPA\LEVODOPA
     Dosage: MD: 9.0ML, CD: 3.1ML/H, ED: 3.3ML
     Route: 050

REACTIONS (16)
  - Carpal tunnel syndrome [Not Recovered/Not Resolved]
  - Defaecation disorder [Recovered/Resolved]
  - Medical device site pain [Not Recovered/Not Resolved]
  - Mobility decreased [Not Recovered/Not Resolved]
  - Fibroma [Unknown]
  - Stoma site discharge [Not Recovered/Not Resolved]
  - Stoma site pain [Not Recovered/Not Resolved]
  - Abnormal dreams [Recovering/Resolving]
  - Initial insomnia [Not Recovered/Not Resolved]
  - General physical health deterioration [Not Recovered/Not Resolved]
  - Nocturia [Not Recovered/Not Resolved]
  - Unevaluable event [Not Recovered/Not Resolved]
  - Hyperkinesia [Unknown]
  - Gait disturbance [Not Recovered/Not Resolved]
  - Dyskinesia [Unknown]
  - Musculoskeletal disorder [Not Recovered/Not Resolved]

NARRATIVE: CASE EVENT DATE: 20220101
